FAERS Safety Report 7575277-4 (Version None)
Quarter: 2011Q2

REPORT INFORMATION
  Report Type: 
  Country: None (occurrence: None)
  Receive Date: 20110627
  Receipt Date: 20110620
  Transmission Date: 20111010
  Serious: Yes (Other)
  Sender: FDA-Public Use
  Company Number: DE-PFIZER INC-2011104199

PATIENT
  Age: 62 Year
  Sex: Female
  Weight: 74 kg

DRUGS (5)
  1. BISOPROLOL [Concomitant]
     Indication: HYPERTENSION
     Dosage: 1 DF, 1X/DAY
     Dates: start: 19990101
  2. LEVOTHYROXINE SODIUM [Concomitant]
     Indication: THYROIDECTOMY
     Dosage: 150 UNK, 1X/DAY
     Dates: start: 19920101
  3. MARCUMAR [Concomitant]
     Indication: PULMONARY EMBOLISM
  4. MARCUMAR [Concomitant]
     Indication: THROMBOSIS
     Dosage: 3 MG, 1X/DAY
     Dates: start: 20100101
  5. AROMASIN [Suspect]
     Indication: BREAST CANCER FEMALE
     Dosage: UNK
     Dates: start: 20100101

REACTIONS (3)
  - BACK PAIN [None]
  - ARTHRITIS [None]
  - JOINT EFFUSION [None]
